FAERS Safety Report 10182969 (Version 1)
Quarter: 2014Q2

REPORT INFORMATION
  Report Type: Spontaneous
  Country: FR (occurrence: FR)
  Receive Date: 20140520
  Receipt Date: 20140520
  Transmission Date: 20141212
  Serious: Yes (Hospitalization)
  Sender: FDA-Public Use
  Company Number: FR-PFIZER INC-2014134282

PATIENT
  Age: 10 Year
  Sex: Male

DRUGS (1)
  1. ADVILMED ENFANTS ET NOURRISSONS [Suspect]
     Dosage: SEVERAL TIMES PER DAY FOR 1 OR 2 WEEKS

REACTIONS (1)
  - Renal failure acute [Recovered/Resolved]
